FAERS Safety Report 13850738 (Version 1)
Quarter: 2017Q3

REPORT INFORMATION
  Report Type: Spontaneous
  Country: US (occurrence: US)
  Receive Date: 20170809
  Receipt Date: 20170809
  Transmission Date: 20171127
  Serious: Yes (Hospitalization)
  Sender: FDA-Public Use
  Company Number: US-PFIZER INC-2017343333

PATIENT
  Age: 44 Year
  Sex: Female

DRUGS (2)
  1. LYRICA [Suspect]
     Active Substance: PREGABALIN
     Indication: DIABETIC NEUROPATHY
     Dosage: 1000 MG, DAILY (FIVE 200MG CAPSULES PER DAY)
     Route: 048
  2. LYRICA [Suspect]
     Active Substance: PREGABALIN
     Indication: FIBROMYALGIA
     Dosage: 200 MG, 3X/DAY (ONE 200 MG CAPSULE 3X A DAY)
     Route: 048
     Dates: start: 2009

REACTIONS (7)
  - Depression [Recovering/Resolving]
  - Feeding disorder [Unknown]
  - Intentional overdose [Not Recovered/Not Resolved]
  - Drug effect decreased [Unknown]
  - Renal failure [Recovered/Resolved]
  - Weight decreased [Unknown]
  - Myocardial infarction [Recovered/Resolved with Sequelae]

NARRATIVE: CASE EVENT DATE: 20140710
